FAERS Safety Report 15262212 (Version 1)
Quarter: 2018Q3

REPORT INFORMATION
  Report Type: Spontaneous
  Country: US (occurrence: US)
  Receive Date: 20180720
  Receipt Date: 20180720
  Transmission Date: 20181010
  Serious: Yes (Disabling)
  Sender: FDA-Public Use
  Company Number: None

PATIENT
  Age: 76 Year
  Sex: Female
  Weight: 66.6 kg

DRUGS (8)
  1. MAXZIDE [Concomitant]
     Active Substance: HYDROCHLOROTHIAZIDE\TRIAMTERENE
  2. FLAGYL [Suspect]
     Active Substance: METRONIDAZOLE\METRONIDAZOLE HYDROCHLORIDE
     Indication: DIVERTICULITIS
     Dosage: ?          QUANTITY:46 TABLET(S);?
     Route: 042
     Dates: start: 20180101, end: 20180120
  3. NORVASC [Concomitant]
     Active Substance: AMLODIPINE BESYLATE
  4. GABAPENTIN. [Concomitant]
     Active Substance: GABAPENTIN
  5. FISH OIL [Concomitant]
     Active Substance: FISH OIL
  6. POTASSIUM [Concomitant]
     Active Substance: POTASSIUM
  7. BIT B COMPLEX [Concomitant]
  8. BIT D [Concomitant]

REACTIONS (6)
  - Neuropathy peripheral [None]
  - Fall [None]
  - Gait disturbance [None]
  - Muscular weakness [None]
  - Hypoaesthesia [None]
  - Impaired work ability [None]

NARRATIVE: CASE EVENT DATE: 20180201
